FAERS Safety Report 8936257 (Version 3)
Quarter: 2013Q1

REPORT INFORMATION
  Report Type: Spontaneous
  Country: US (occurrence: US)
  Receive Date: 20121130
  Receipt Date: 20130125
  Transmission Date: 20140127
  Serious: Yes (Other)
  Sender: FDA-Public Use
  Company Number: US-VERTEX PHARMACEUTICAL INC.-2012-025115

PATIENT
  Age: 31 Year
  Sex: Female

DRUGS (3)
  1. INCIVEK [Suspect]
     Indication: HEPATITIS C
  2. RIBAVIRIN [Suspect]
     Indication: HEPATITIS C
  3. PEGYLATED INTERFERON ALFA-2A [Suspect]
     Indication: HEPATITIS C

REACTIONS (3)
  - Anaemia [Recovered/Resolved]
  - Rash [Unknown]
  - Drug ineffective [Unknown]
